FAERS Safety Report 7238856-X (Version None)
Quarter: 2011Q1

REPORT INFORMATION
  Report Type: 
  Country: None (occurrence: None)
  Receive Date: 20110121
  Receipt Date: 20110112
  Transmission Date: 20110831
  Serious: Yes (Hospitalization, Other)
  Sender: FDA-Public Use
  Company Number: PHEH2010US02632

PATIENT
  Sex: Male
  Weight: 82.54 kg

DRUGS (8)
  1. GLEEVEC [Suspect]
     Indication: GASTROINTESTINAL STROMAL TUMOUR
     Dosage: 400 MG, QD
     Route: 048
     Dates: start: 20090930
  2. GLEEVEC [Suspect]
     Indication: CHRONIC MYELOID LEUKAEMIA
     Dosage: 400 MG DAILY
     Route: 048
     Dates: start: 20100114
  3. FLOMAX [Concomitant]
     Indication: BENIGN PROSTATIC HYPERPLASIA
     Dosage: UNK, UNK
  4. KLONOPIN [Concomitant]
     Dosage: UNK, UNK
  5. ZOCOR [Concomitant]
     Dosage: UNK, UNK
  6. HYDROCHLOROTHIAZIDE [Concomitant]
     Dosage: UNK, UNK
  7. VERAPAMIL [Concomitant]
     Dosage: UNK
  8. LEVOTHYROXINE [Concomitant]
     Dosage: UNK, UNK

REACTIONS (7)
  - DYSPNOEA [None]
  - DIZZINESS [None]
  - FULL BLOOD COUNT DECREASED [None]
  - TACHYCARDIA [None]
  - PALPITATIONS [None]
  - ARTHRALGIA [None]
  - IRON DEFICIENCY ANAEMIA [None]
